FAERS Safety Report 8759863 (Version 1)
Quarter: 2012Q4

REPORT INFORMATION
  Report Type: 
  Country: US (occurrence: US)
  Receive Date: 20120829
  Receipt Date: 20120829
  Transmission Date: 20130627
  Serious: Yes (Death)
  Sender: FDA-Public Use
  Company Number: US-ROCHE-1104312

PATIENT
  Sex: Male

DRUGS (4)
  1. AVASTIN [Suspect]
     Indication: BRAIN NEOPLASM MALIGNANT
     Dates: start: 200702, end: 200709
  2. AVASTIN [Suspect]
     Dates: start: 20071212
  3. TARCEVA [Suspect]
     Indication: PRODUCT USED FOR UNKNOWN INDICATION
     Dates: start: 200702, end: 200709
  4. CAMPTOSAR [Concomitant]
     Dates: start: 20071212

REACTIONS (1)
  - Death [Fatal]
